FAERS Safety Report 5046087-7 (Version None)
Quarter: 2006Q3

REPORT INFORMATION
  Report Type: 
  Country: None (occurrence: None)
  Receive Date: 20060710
  Receipt Date: 20060629
  Transmission Date: 20061208
  Serious: Yes (Death)
  Sender: FDA-Public Use
  Company Number: JP-MERCK-0607USA00151

PATIENT
  Age: 85 Year
  Sex: Female

DRUGS (3)
  1. DOMPERIDONE [Concomitant]
     Indication: NAUSEA
     Route: 065
     Dates: start: 20060626, end: 20060630
  2. PRIMAXIN [Suspect]
     Indication: PNEUMONIA
     Route: 041
     Dates: start: 20060614, end: 20060628
  3. VANCOMYCIN HYDROCHLORIDE [Concomitant]
     Indication: PNEUMONIA
     Route: 048
     Dates: start: 20060619, end: 20060627

REACTIONS (3)
  - DEATH [None]
  - DEPRESSED LEVEL OF CONSCIOUSNESS [None]
  - HYPOGLYCAEMIA [None]
